FAERS Safety Report 10403502 (Version 1)
Quarter: 2014Q3

REPORT INFORMATION
  Report Type: Spontaneous
  Country: US (occurrence: US)
  Receive Date: 20140822
  Receipt Date: 20140822
  Transmission Date: 20150326
  Serious: No
  Sender: FDA-Public Use
  Company Number: US-ASTRAZENECA-2013SE92461

PATIENT
  Sex: Female

DRUGS (1)
  1. SYMBICORT [Suspect]
     Active Substance: BUDESONIDE\FORMOTEROL FUMARATE DIHYDRATE
     Dosage: 160/4.5, 2 PUFFS BID
     Route: 055

REACTIONS (7)
  - Drug dose omission [Unknown]
  - Dyspnoea [Unknown]
  - Malaise [Unknown]
  - Device misuse [Unknown]
  - Circumstance or information capable of leading to medication error [Unknown]
  - Mental impairment [Unknown]
  - Confusional state [Unknown]
